FAERS Safety Report 5183963-9 (Version None)
Quarter: 2006Q4

REPORT INFORMATION
  Report Type: 
  Country: None (occurrence: None)
  Receive Date: 20061220
  Receipt Date: 20060228
  Transmission Date: 20070319
  Serious: No
  Sender: FDA-Public Use
  Company Number: US-GLAXOSMITHKLINE-A0595860A

PATIENT
  Sex: Female

DRUGS (2)
  1. NICODERM CQ [Suspect]
  2. NICORETTE (MINT) [Suspect]

REACTIONS (4)
  - APPLICATION SITE RASH [None]
  - HYPERSENSITIVITY [None]
  - PRURITUS GENERALISED [None]
  - URTICARIA [None]
